FAERS Safety Report 5202336-3 (Version None)
Quarter: 2007Q1

REPORT INFORMATION
  Report Type: 
  Country: None (occurrence: None)
  Receive Date: 20070109
  Receipt Date: 20061229
  Transmission Date: 20070707
  Serious: Yes (Other)
  Sender: FDA-Public Use
  Company Number: US-ELI_LILLY_AND_COMPANY-US200701000106

PATIENT
  Age: 65 Year
  Sex: Female

DRUGS (2)
  1. FORTEO [Suspect]
     Indication: OSTEOPOROSIS
     Dosage: UNK, UNK
     Dates: start: 20050201
  2. NEXIUM [Concomitant]
     Indication: DYSPEPSIA

REACTIONS (5)
  - CORNEAL ABRASION [None]
  - DRY EYE [None]
  - DRY SKIN [None]
  - EYE PAIN [None]
  - EYELID FUNCTION DISORDER [None]
